FAERS Safety Report 5952466-3 (Version None)
Quarter: 2008Q4

REPORT INFORMATION
  Report Type: 
  Country: None (occurrence: None)
  Receive Date: 20081113
  Receipt Date: 20081104
  Transmission Date: 20090506
  Serious: Yes (Life-Threatening, Hospitalization)
  Sender: FDA-Public Use
  Company Number: JP-PFIZER INC-2008087678

PATIENT
  Sex: Female

DRUGS (2)
  1. CELECOX [Suspect]
     Indication: OSTEOARTHRITIS
     Dosage: DAILY DOSE:100MG-TEXT:2 TABLETES
     Route: 048
     Dates: start: 20080705, end: 20080730
  2. VITAMIN B COMPLEX CAP [Concomitant]
     Dates: end: 20080801

REACTIONS (4)
  - ARRHYTHMIA [None]
  - HYPERKALAEMIA [None]
  - NODAL ARRHYTHMIA [None]
  - RENAL IMPAIRMENT [None]
